FAERS Safety Report 14780176 (Version 1)
Quarter: 2018Q2

REPORT INFORMATION
  Report Type: Spontaneous
  Country: US (occurrence: US)
  Receive Date: 20180419
  Receipt Date: 20180419
  Transmission Date: 20180711
  Serious: No
  Sender: FDA-Public Use
  Company Number: US-ELI_LILLY_AND_COMPANY-US201804004811

PATIENT
  Age: 67 Year
  Sex: Male

DRUGS (1)
  1. BASAGLAR [Suspect]
     Active Substance: INSULIN GLARGINE
     Indication: DIABETES MELLITUS
     Dosage: 30 U, OTHER, AT NIGHT

REACTIONS (6)
  - Diarrhoea [Recovering/Resolving]
  - Underdose [Recovering/Resolving]
  - Product storage error [Unknown]
  - Renal disorder [Unknown]
  - Blood glucose increased [Recovering/Resolving]
  - Fatigue [Unknown]

NARRATIVE: CASE EVENT DATE: 20180408
